FAERS Safety Report 6883391-1 (Version None)
Quarter: 2010Q3

REPORT INFORMATION
  Report Type: 
  Country: None (occurrence: None)
  Receive Date: 20100727
  Receipt Date: 20070917
  Transmission Date: 20110219
  Serious: Yes (Death, Other)
  Sender: FDA-Public Use
  Company Number: US-PFIZER INC-2007033774

PATIENT
  Sex: Male
  Weight: 127 kg

DRUGS (3)
  1. CELEBREX [Suspect]
     Indication: ARTHRITIS
     Route: 048
     Dates: start: 19990922, end: 20000101
  2. VIOXX [Suspect]
     Indication: ARTHRITIS
     Route: 048
     Dates: start: 19990824, end: 20000129
  3. HYZAAR [Concomitant]
     Dates: start: 20000101, end: 20000130

REACTIONS (1)
  - CEREBROVASCULAR ACCIDENT [None]
